FAERS Safety Report 14672813 (Version 5)
Quarter: 2018Q4

REPORT INFORMATION
  Report Type: Spontaneous
  Country: US (occurrence: US)
  Receive Date: 20180323
  Receipt Date: 20181207
  Transmission Date: 20190204
  Serious: Yes (Hospitalization, Other)
  Sender: FDA-Public Use
  Company Number: US-ASTELLAS-2018US013803

PATIENT
  Age: 93 Year
  Sex: Male

DRUGS (1)
  1. XTANDI [Suspect]
     Active Substance: ENZALUTAMIDE
     Indication: PROSTATE CANCER
     Route: 048
     Dates: start: 20171213, end: 201811

REACTIONS (9)
  - Myocardial infarction [Recovering/Resolving]
  - Fluid retention [Not Recovered/Not Resolved]
  - Myocardial infarction [Recovering/Resolving]
  - Arthropod bite [Recovering/Resolving]
  - Ageusia [Not Recovered/Not Resolved]
  - Product dose omission [Unknown]
  - Decreased appetite [Not Recovered/Not Resolved]
  - Weight decreased [Not Recovered/Not Resolved]
  - Pleural effusion [Recovering/Resolving]

NARRATIVE: CASE EVENT DATE: 20180310
